FAERS Safety Report 9270629 (Version 1)
Quarter: 2013Q2

REPORT INFORMATION
  Report Type: Spontaneous
  Country: GB (occurrence: GB)
  Receive Date: 20130504
  Receipt Date: 20130504
  Transmission Date: 20140414
  Serious: Yes (Life-Threatening, Hospitalization)
  Sender: FDA-Public Use
  Company Number: GB-MERCK-2012SP033341

PATIENT
  Age: 52 Year
  Sex: Female

DRUGS (2)
  1. NOXAFIL [Suspect]
     Dosage: 600 MG, QD
     Route: 042
     Dates: start: 20120306
  2. ANTIMICROBIAL (UNSPECIFIED) [Concomitant]

REACTIONS (2)
  - Aspergillus infection [Recovering/Resolving]
  - Oral herpes [Recovering/Resolving]
